FAERS Safety Report 7108960-5 (Version None)
Quarter: 2010Q4

REPORT INFORMATION
  Report Type: 
  Country: None (occurrence: None)
  Receive Date: 20101112
  Receipt Date: 20101104
  Transmission Date: 20110411
  Serious: Yes (Hospitalization, Other)
  Sender: FDA-Public Use
  Company Number: 2010SP057817

PATIENT
  Age: 36 Year
  Sex: Female

DRUGS (2)
  1. IMPLANON [Suspect]
     Indication: CONTRACEPTION
     Dosage: 1 DF;  1 DF; SC
     Route: 058
     Dates: start: 20090219, end: 20101029
  2. IMPLANON [Suspect]

REACTIONS (7)
  - ANAEMIA [None]
  - ECTOPIC PREGNANCY [None]
  - EFFUSION [None]
  - METRORRHAGIA [None]
  - PELVIC PAIN [None]
  - PERITONEAL HAEMORRHAGE [None]
  - PREGNANCY WITH IMPLANT CONTRACEPTIVE [None]
